FAERS Safety Report 6656695-5 (Version None)
Quarter: 2010Q1

REPORT INFORMATION
  Report Type: 
  Country: None (occurrence: None)
  Receive Date: 20100324
  Receipt Date: 20100308
  Transmission Date: 20100710
  Serious: Yes (Hospitalization)
  Sender: FDA-Public Use
  Company Number: 2009-4572

PATIENT
  Age: 64 Year
  Sex: Female
  Weight: 59 kg

DRUGS (11)
  1. DYSPORT [Suspect]
     Indication: SKIN COSMETIC PROCEDURE
     Dosage: 162.5 UNITS (162.5 UNITS, SINGLE CYCLE), INTRAMUSCULAR
     Route: 030
     Dates: start: 20091103, end: 20091103
  2. DYSPORT [Suspect]
     Indication: SKIN WRINKLING
     Dosage: 162.5 UNITS (162.5 UNITS, SINGLE CYCLE), INTRAMUSCULAR
     Route: 030
     Dates: start: 20091103, end: 20091103
  3. PREMARIN [Concomitant]
  4. MOBIC [Concomitant]
  5. ASCORBIC ACID [Concomitant]
  6. PHYTONADIONE [Concomitant]
  7. MSM (METHYLSULFONYLMETHANE) [Concomitant]
  8. ADREN-ALL (EPIINEPHRINE) [Concomitant]
  9. MYO-SEDATE (ALL OTHER THERAPEUTIC PRODUCTS) [Concomitant]
  10. CO-Q10 (UBIDECARENONE) [Concomitant]
  11. OMEGA 3 FISH OIL (FISH OIL) [Concomitant]

REACTIONS (9)
  - ASTHENIA [None]
  - DIZZINESS [None]
  - DYSPHAGIA [None]
  - DYSPHONIA [None]
  - DYSPNOEA [None]
  - FEELING ABNORMAL [None]
  - LIP DISORDER [None]
  - NASAL DISORDER [None]
  - OFF LABEL USE [None]
